FAERS Safety Report 9129619 (Version 2)
Quarter: 2013Q2

REPORT INFORMATION
  Report Type: Spontaneous
  Country: DE (occurrence: DE)
  Receive Date: 20130228
  Receipt Date: 20130407
  Transmission Date: 20140414
  Serious: Yes (Life-Threatening, Hospitalization)
  Sender: FDA-Public Use
  Company Number: DE-JNJFOC-20130213524

PATIENT
  Age: 69 Year
  Sex: Male
  Weight: 102 kg

DRUGS (6)
  1. XARELTO [Suspect]
     Indication: CEREBROVASCULAR ACCIDENT PROPHYLAXIS
     Route: 048
  2. XARELTO [Suspect]
     Indication: ATRIAL FIBRILLATION
     Route: 048
  3. TORASEMID [Concomitant]
     Indication: CARDIAC FAILURE
     Route: 065
     Dates: start: 20130204
  4. EPROSARTAN [Concomitant]
     Indication: CARDIAC FAILURE
     Route: 065
     Dates: start: 2012
  5. BISOPROLOL [Concomitant]
     Indication: CARDIAC FAILURE
     Route: 065
     Dates: start: 2012
  6. SPIRONOLACTON [Concomitant]
     Indication: CARDIAC FAILURE
     Route: 065
     Dates: start: 20130204

REACTIONS (2)
  - Cardiac tamponade [Unknown]
  - Haemoglobin decreased [Recovering/Resolving]
